FAERS Safety Report 15819380 (Version 1)
Quarter: 2019Q1

REPORT INFORMATION
  Report Type: Spontaneous
  Country: AU (occurrence: AU)
  Receive Date: 20190114
  Receipt Date: 20190114
  Transmission Date: 20190417
  Serious: Yes (Other)
  Sender: FDA-Public Use
  Company Number: AU-TEVA-2019-AU-997077

PATIENT
  Sex: Male

DRUGS (1)
  1. TEVARIPIPRAZOLE [Suspect]
     Active Substance: ARIPIPRAZOLE
     Dosage: DOSAGE UNKNOWN
     Route: 065

REACTIONS (5)
  - Lethargy [Unknown]
  - Neuroleptic malignant syndrome [Unknown]
  - Confusional state [Unknown]
  - Tremor [Unknown]
  - Decreased appetite [Unknown]
